FAERS Safety Report 25732849 (Version 1)
Quarter: 2025Q3

REPORT INFORMATION
  Report Type: Spontaneous
  Country: CN (occurrence: CN)
  Receive Date: 20250828
  Receipt Date: 20250828
  Transmission Date: 20251021
  Serious: Yes (Other)
  Sender: BAXTER
  Company Number: None

PATIENT
  Age: 58 Year
  Sex: Female
  Weight: 68 kg

DRUGS (4)
  1. CYCLOPHOSPHAMIDE [Suspect]
     Active Substance: CYCLOPHOSPHAMIDE
     Indication: Breast cancer female
     Dosage: 1 G, QD (WITH 0.9% SODIUM CHLORIDE INJECTION 50 ML )
     Route: 042
     Dates: start: 20250729, end: 20250729
  2. SODIUM CHLORIDE [Suspect]
     Active Substance: SODIUM CHLORIDE
     Dosage: 50 ML, QD (WITH CYCLOPHOSPHAMIDE)
     Route: 042
     Dates: start: 20250729, end: 20250729
  3. SODIUM CHLORIDE [Suspect]
     Active Substance: SODIUM CHLORIDE
     Dosage: 350 ML, QD (WITH DOCETAXEL INJECTION)
     Route: 041
     Dates: start: 20250729, end: 20250729
  4. DOCETAXEL [Suspect]
     Active Substance: DOCETAXEL
     Indication: Breast cancer female
     Dosage: 120 MG, QD+0.9% SODIUM CHLORIDE INJECTION 350 ML
     Route: 041
     Dates: start: 20250729, end: 20250729

REACTIONS (3)
  - Myelosuppression [Recovering/Resolving]
  - White blood cell count decreased [Unknown]
  - Neutrophil count decreased [Unknown]

NARRATIVE: CASE EVENT DATE: 20250809
